FAERS Safety Report 10043406 (Version 1)
Quarter: 2014Q1

REPORT INFORMATION
  Report Type: Spontaneous
  Country: US (occurrence: None)
  Receive Date: 20140327
  Receipt Date: 20140327
  Transmission Date: 20141002
  Serious: No
  Sender: FDA-Public Use
  Company Number: None

PATIENT
  Age: 55 Year
  Sex: Male
  Weight: 81.65 kg

DRUGS (2)
  1. METFORMIN [Suspect]
     Indication: DIABETES MELLITUS INADEQUATE CONTROL
     Route: 048
     Dates: start: 20060410, end: 20140226
  2. METFORMIN [Suspect]
     Dates: start: 20070329

REACTIONS (3)
  - Abdominal pain [None]
  - Abdominal distension [None]
  - Diarrhoea [None]
